FAERS Safety Report 5227105-X (Version None)
Quarter: 2007Q1

REPORT INFORMATION
  Report Type: 
  Country: None (occurrence: None)
  Receive Date: 20070130
  Receipt Date: 20070127
  Transmission Date: 20070707
  Serious: No
  Sender: FDA-Public Use
  Company Number: 230300

PATIENT
  Age: 76 Year
  Sex: Female
  Weight: 79.4 kg

DRUGS (5)
  1. LUCENTIS [Suspect]
     Indication: MACULAR DEGENERATION
     Dosage: SINGLE, INTRAVITREAL
     Dates: start: 20060719, end: 20060719
  2. LUCENTIS [Suspect]
     Indication: MACULAR DEGENERATION
     Dosage: SINGLE, INTRAVITREAL
     Dates: start: 20060830, end: 20060830
  3. AVASTIN [Suspect]
     Indication: MACULAR DEGENERATION
     Dosage: INTRAVITREAL
     Dates: start: 20060101, end: 20060601
  4. SUPPLEMENTS (SUPPLEMENTS) [Concomitant]
  5. PREDNISONE TAB [Concomitant]

REACTIONS (3)
  - EYE SWELLING [None]
  - OCULAR HYPERAEMIA [None]
  - VITREOUS FLOATERS [None]
